FAERS Safety Report 10727794 (Version 1)
Quarter: 2015Q1

REPORT INFORMATION
  Report Type: Spontaneous
  Country: US (occurrence: US)
  Receive Date: 20150121
  Receipt Date: 20150121
  Transmission Date: 20150721
  Serious: Yes (Other)
  Sender: FDA-Public Use
  Company Number: US-GLAXOSMITHKLINE-US2015005976

PATIENT
  Sex: Female

DRUGS (16)
  1. OSPHENA [Concomitant]
     Active Substance: OSPEMIFENE
  2. POTASSIUM [Concomitant]
     Active Substance: POTASSIUM
  3. CYMBALTA [Concomitant]
     Active Substance: DULOXETINE HYDROCHLORIDE
  4. PROTONIX [Concomitant]
     Active Substance: PANTOPRAZOLE SODIUM
  5. OMEPRAZOLE. [Concomitant]
     Active Substance: OMEPRAZOLE
  6. SUMAVEL DOSEPRO [Concomitant]
     Active Substance: SUMATRIPTAN SUCCINATE
  7. LASIX [Concomitant]
     Active Substance: FUROSEMIDE
  8. SINGULAIR [Concomitant]
     Active Substance: MONTELUKAST SODIUM
  9. TIZANIDINE HYDROCHLORIDE. [Concomitant]
     Active Substance: TIZANIDINE HYDROCHLORIDE
  10. TOPAMAX [Concomitant]
     Active Substance: TOPIRAMATE
  11. UNSPECIFIED MEDICATION [Concomitant]
     Active Substance: UNSPECIFIED INGREDIENT
  12. LOVAZA [Suspect]
     Active Substance: OMEGA-3-ACID ETHYL ESTERS
     Indication: HIGH DENSITY LIPOPROTEIN INCREASED
     Dosage: 2000 MG, BID
     Route: 048
  13. TEARS AGAIN [Concomitant]
  14. VERAPAMIL [Concomitant]
     Active Substance: VERAPAMIL HYDROCHLORIDE
  15. RESTASIS [Concomitant]
     Active Substance: CYCLOSPORINE
  16. SIMVASTATIN. [Concomitant]
     Active Substance: SIMVASTATIN

REACTIONS (2)
  - Pneumonia [Unknown]
  - Intervertebral disc degeneration [Unknown]
